FAERS Safety Report 6149194-0 (Version None)
Quarter: 2009Q2

REPORT INFORMATION
  Report Type: 
  Country: None (occurrence: None)
  Receive Date: 20090407
  Receipt Date: 20090324
  Transmission Date: 20091009
  Serious: Yes (Hospitalization)
  Sender: FDA-Public Use
  Company Number: FR-2009-0306

PATIENT
  Age: 49 Year
  Sex: Female
  Weight: 56 kg

DRUGS (7)
  1. NAVELBINE [Suspect]
     Indication: BREAST CANCER
     Dosage: 35 MG IV
     Route: 042
     Dates: start: 20081118, end: 20090120
  2. LAPATINIB [Suspect]
     Indication: BREAST CANCER
     Dosage: 1000 MG PO
     Route: 048
     Dates: start: 20081111, end: 20090122
  3. SKENAN [Concomitant]
  4. NEURONTIN [Concomitant]
  5. DOLIPRANE [Concomitant]
  6. NULYTELY [Concomitant]
  7. PREDNISOLONE [Concomitant]

REACTIONS (4)
  - DISEASE PROGRESSION [None]
  - JAUNDICE [None]
  - LIVER FUNCTION TEST ABNORMAL [None]
  - VISION BLURRED [None]
